FAERS Safety Report 24966000 (Version 1)
Quarter: 2025Q1

REPORT INFORMATION
  Report Type: Spontaneous
  Country: PT (occurrence: PT)
  Receive Date: 20250213
  Receipt Date: 20250213
  Transmission Date: 20250409
  Serious: Yes (Other)
  Sender: NOVARTIS
  Company Number: PT-002147023-NVSC2025PT021395

PATIENT
  Age: 48 Year
  Sex: Male

DRUGS (1)
  1. KESIMPTA [Suspect]
     Active Substance: OFATUMUMAB
     Indication: Product used for unknown indication
     Route: 065
     Dates: start: 202307

REACTIONS (5)
  - Expanded disability status scale score increased [Unknown]
  - Skin lesion [Unknown]
  - Gait disturbance [Unknown]
  - Condition aggravated [Unknown]
  - Lymphocyte count decreased [Unknown]

NARRATIVE: CASE EVENT DATE: 20240101
